FAERS Safety Report 7137301-2 (Version None)
Quarter: 2010Q4

REPORT INFORMATION
  Report Type: 
  Country: None (occurrence: None)
  Receive Date: 20101206
  Receipt Date: 20090816
  Transmission Date: 20110411
  Serious: Yes (Death)
  Sender: FDA-Public Use
  Company Number: US-ACTELION-A-US2008-22480

PATIENT

DRUGS (4)
  1. ILOPROST INHALATION SOLUTION UNKNOWN US [Suspect]
     Indication: PULMONARY ARTERIAL HYPERTENSION
     Dosage: 5 UG, UNK
     Route: 055
     Dates: start: 20080909
  2. TRACLEER [Suspect]
     Indication: PULMONARY ARTERIAL HYPERTENSION
     Dosage: 125 MG, UNK
     Route: 048
     Dates: start: 20080208
  3. BENZONATATE [Concomitant]
  4. SILDENAFIL CITRATE [Concomitant]

REACTIONS (3)
  - DEATH [None]
  - DIZZINESS [None]
  - NAUSEA [None]
